FAERS Safety Report 10456707 (Version 1)
Quarter: 2014Q3

REPORT INFORMATION
  Report Type: Spontaneous
  Country: US (occurrence: US)
  Receive Date: 20140916
  Receipt Date: 20140916
  Transmission Date: 20150326
  Serious: No
  Sender: FDA-Public Use
  Company Number: US-PFIZER INC-2014252803

PATIENT
  Sex: Male

DRUGS (1)
  1. ADVIL CONGESTION RELIEF [Suspect]
     Active Substance: IBUPROFEN\PHENYLEPHRINE HYDROCHLORIDE
     Indication: POLYPECTOMY
     Dosage: UNK

REACTIONS (1)
  - Drug ineffective for unapproved indication [Unknown]
